FAERS Safety Report 7013728-4 (Version None)
Quarter: 2010Q3

REPORT INFORMATION
  Report Type: 
  Country: None (occurrence: None)
  Receive Date: 20100924
  Receipt Date: 20100917
  Transmission Date: 20110219
  Serious: Yes (Other)
  Sender: FDA-Public Use
  Company Number: US-PFIZER INC-2008012057

PATIENT
  Sex: Male
  Weight: 72.562 kg

DRUGS (26)
  1. CHANTIX [Suspect]
     Indication: SMOKING CESSATION THERAPY
     Dosage: 1 MG, 2X/DAY
     Route: 048
     Dates: start: 20071201
  2. CHANTIX [Suspect]
     Dosage: 1 MG, 2X/DAY
     Route: 048
     Dates: start: 20080101, end: 20080201
  3. CHANTIX [Suspect]
     Dosage: 0.5 MG, 1X/DAY
     Route: 048
     Dates: start: 20090215, end: 20090201
  4. CHANTIX [Suspect]
     Dosage: 0.5 MG, 1X/DAY
     Route: 048
     Dates: start: 20100917
  5. GLIMEPIRIDE [Concomitant]
  6. PAXIL [Concomitant]
  7. OMEPRAZOLE [Concomitant]
     Dosage: UNK
     Route: 048
  8. OMEPRAZOLE [Concomitant]
     Route: 048
  9. GLYBURIDE [Concomitant]
  10. HYDROCHLOROTHIAZIDE [Concomitant]
     Dosage: UNK
     Route: 048
  11. HYDROCHLOROTHIAZIDE [Concomitant]
     Route: 048
  12. SIMVASTATIN [Concomitant]
     Indication: BLOOD CHOLESTEROL INCREASED
     Dosage: UNK
     Route: 048
  13. SIMVASTATIN [Concomitant]
     Route: 048
  14. PROSCAR [Concomitant]
  15. METFORMIN [Concomitant]
  16. ACETYLSALICYLIC ACID [Concomitant]
  17. PLAVIX [Concomitant]
     Route: 048
  18. PLAVIX [Concomitant]
     Route: 048
  19. TERAZOSIN HCL [Concomitant]
  20. FLUOXETINE [Concomitant]
     Dosage: UNK
     Route: 048
  21. GLIPIZIDE [Concomitant]
     Dosage: UNK
     Route: 048
  22. SITAGLIPTIN [Concomitant]
     Dosage: UNK
     Route: 048
  23. AVODART [Concomitant]
     Dosage: UNK
     Route: 048
  24. INSULIN [Concomitant]
  25. LISINOPRIL [Concomitant]
  26. VITAMIN D [Concomitant]

REACTIONS (13)
  - ACTIVITIES OF DAILY LIVING IMPAIRED [None]
  - ASTHENIA [None]
  - BALANCE DISORDER [None]
  - CONSTIPATION [None]
  - DIZZINESS [None]
  - DYSSTASIA [None]
  - FALL [None]
  - FEELING ABNORMAL [None]
  - FLATULENCE [None]
  - GAIT DISTURBANCE [None]
  - LOSS OF CONSCIOUSNESS [None]
  - NAUSEA [None]
  - VOMITING [None]
